FAERS Safety Report 5861726-6 (Version None)
Quarter: 2008Q3

REPORT INFORMATION
  Report Type: 
  Country: None (occurrence: None)
  Receive Date: 20080827
  Receipt Date: 20080611
  Transmission Date: 20090109
  Serious: No
  Sender: FDA-Public Use
  Company Number: US-ABBOTT-08P-163-0460021-00

PATIENT
  Sex: Male
  Weight: 101.24 kg

DRUGS (6)
  1. NIASPAN [Suspect]
     Indication: BLOOD TRIGLYCERIDES INCREASED
     Route: 048
     Dates: start: 20080610
  2. ALLOPURINOL [Concomitant]
     Indication: GOUT
     Route: 048
  3. LISINOPRIL [Concomitant]
     Indication: HYPERTENSION
     Route: 048
  4. PAROXETINE HCL [Concomitant]
     Indication: DEPRESSION
     Route: 048
  5. ACETYLSALICYLIC ACID SRT [Concomitant]
     Indication: PROPHYLAXIS
     Route: 048
  6. ACETYLSALICYLIC ACID SRT [Concomitant]
     Indication: FLUSHING

REACTIONS (2)
  - ABDOMINAL PAIN [None]
  - DIZZINESS [None]
